FAERS Safety Report 17015993 (Version 1)
Quarter: 2019Q4

REPORT INFORMATION
  Report Type: Spontaneous
  Country: US (occurrence: US)
  Receive Date: 20191003
  Receipt Date: 20191003
  Transmission Date: 20200122
  Serious: Yes (Hospitalization)
  Sender: FDA-Public Use
  Company Number: None

PATIENT
  Age: 66 Year
  Sex: Female

DRUGS (1)
  1. MAVYRET [Suspect]
     Active Substance: GLECAPREVIR\PIBRENTASVIR
     Indication: CHRONIC HEPATITIS C
     Dosage: ?          OTHER DOSE:300/120MG;?
     Route: 048
     Dates: start: 20190911

REACTIONS (3)
  - Influenza like illness [None]
  - Pneumonia [None]
  - Rash [None]

NARRATIVE: CASE EVENT DATE: 20190919
